FAERS Safety Report 4834247-7 (Version None)
Quarter: 2005Q4

REPORT INFORMATION
  Report Type: 
  Country: None (occurrence: None)
  Receive Date: 20051122
  Receipt Date: 20051004
  Transmission Date: 20060501
  Serious: Yes (Hospitalization)
  Sender: FDA-Public Use
  Company Number: US-MERCK-0510USA02239

PATIENT
  Age: 41 Year
  Sex: Female
  Weight: 155 kg

DRUGS (20)
  1. VIOXX [Suspect]
     Indication: ARTHRITIS
     Route: 048
     Dates: start: 20000323, end: 20041001
  2. ULTRAM [Concomitant]
     Route: 065
  3. [THERAPY UNSPECIFIED] [Concomitant]
     Route: 065
  4. MESTINON [Concomitant]
     Route: 065
  5. NEURONTIN [Concomitant]
     Route: 065
  6. IMIPRAMINE HYDROCHLORIDE [Concomitant]
     Route: 065
  7. HYZAAR [Concomitant]
     Route: 065
  8. ALBUTEROL [Concomitant]
     Route: 065
  9. VITAMIN B (UNSPECIFIED) [Concomitant]
     Route: 065
  10. AZATHIOPRINE [Concomitant]
     Route: 065
  11. GEN-MEDROXY [Concomitant]
     Route: 065
  12. PRILOSEC [Concomitant]
     Route: 065
  13. TOPAMAX [Concomitant]
     Route: 065
  14. PREDNISONE [Concomitant]
     Route: 065
  15. CELLCEPT [Concomitant]
     Indication: MYASTHENIA GRAVIS
     Route: 065
  16. TRAMADOL HYDROCHLORIDE [Concomitant]
     Route: 065
  17. LEVAQUIN [Concomitant]
     Route: 065
  18. POTASSIUM (UNSPECIFIED) [Concomitant]
     Route: 065
  19. ZITHROMAX [Concomitant]
     Route: 065
  20. ALLEGRA [Concomitant]
     Route: 065

REACTIONS (19)
  - BLOOD DISORDER [None]
  - BRONCHITIS ACUTE [None]
  - CARPAL TUNNEL SYNDROME [None]
  - CEREBROVASCULAR ACCIDENT [None]
  - CHEST PAIN [None]
  - DEEP VEIN THROMBOSIS [None]
  - DEPRESSION [None]
  - DIABETES MELLITUS [None]
  - ELECTROCARDIOGRAM Q WAVES [None]
  - GASTROOESOPHAGEAL REFLUX DISEASE [None]
  - HYPERLIPIDAEMIA [None]
  - HYPERSENSITIVITY [None]
  - HYSTERECTOMY [None]
  - MUSCULOSKELETAL DISORDER [None]
  - MYASTHENIA GRAVIS [None]
  - NERVOUS SYSTEM DISORDER [None]
  - UTERINE HAEMORRHAGE [None]
  - VIRAL INFECTION [None]
  - VITAMIN B12 DEFICIENCY [None]
